FAERS Safety Report 6486747-4 (Version None)
Quarter: 2009Q4

REPORT INFORMATION
  Report Type: 
  Country: None (occurrence: None)
  Receive Date: 20091123
  Receipt Date: 20090916
  Transmission Date: 20100525
  Serious: No
  Sender: FDA-Public Use
  Company Number: 8052161

PATIENT
  Sex: Female

DRUGS (1)
  1. CIMZIA [Suspect]
     Dosage: NI
     Dates: start: 20090706

REACTIONS (2)
  - BODY TEMPERATURE INCREASED [None]
  - INJECTION SITE REACTION [None]
